FAERS Safety Report 7498948-7 (Version None)
Quarter: 2011Q2

REPORT INFORMATION
  Report Type: 
  Country: None (occurrence: None)
  Receive Date: 20110516
  Receipt Date: 20110503
  Transmission Date: 20111010
  Serious: Yes (Other)
  Sender: FDA-Public Use
  Company Number: 2011SP001434

PATIENT
  Age: 4 Year

DRUGS (1)
  1. XOPENEX [Suspect]
     Dosage: INHALATION
     Route: 055

REACTIONS (1)
  - CONVULSION [None]
